FAERS Safety Report 25368195 (Version 1)
Quarter: 2025Q2

REPORT INFORMATION
  Report Type: Spontaneous
  Country: MX (occurrence: MX)
  Receive Date: 20250528
  Receipt Date: 20250528
  Transmission Date: 20250716
  Serious: Yes (Other)
  Sender: ROCHE
  Company Number: MX-ROCHE-10000287234

PATIENT
  Age: 68 Year
  Sex: Male

DRUGS (2)
  1. AVASTIN [Suspect]
     Active Substance: BEVACIZUMAB
     Indication: Lung neoplasm malignant
     Dosage: 4 BOTTLES OF AVASTIN 400MG VIA CATHETER PORT.
     Route: 042
     Dates: start: 20230518
  2. OSIMERTINIB [Concomitant]
     Active Substance: OSIMERTINIB
     Indication: Lung neoplasm malignant

REACTIONS (6)
  - Gastric polyps [Recovering/Resolving]
  - Weight decreased [Recovering/Resolving]
  - Vomiting [Recovering/Resolving]
  - Decreased appetite [Recovering/Resolving]
  - Benign pancreatic neoplasm [Recovering/Resolving]
  - Reactive gastropathy [Recovering/Resolving]

NARRATIVE: CASE EVENT DATE: 20250201
